FAERS Safety Report 18639185 (Version 3)
Quarter: 2021Q1

REPORT INFORMATION
  Report Type: Spontaneous
  Country: US (occurrence: US)
  Receive Date: 20201218
  Receipt Date: 20210119
  Transmission Date: 20210419
  Serious: Yes (Other)
  Sender: FDA-Public Use
  Company Number: US-ROCHE-2724319

PATIENT
  Age: 62 Year
  Sex: Female

DRUGS (1)
  1. XELODA [Suspect]
     Active Substance: CAPECITABINE
     Indication: BREAST CANCER
     Route: 048
     Dates: start: 202011

REACTIONS (5)
  - Muscle spasms [Unknown]
  - Fatigue [Unknown]
  - Herpes zoster [Unknown]
  - Back pain [Unknown]
  - Rash [Unknown]

NARRATIVE: CASE EVENT DATE: 20201116
